FAERS Safety Report 10025853 (Version 1)
Quarter: 2014Q1

REPORT INFORMATION
  Report Type: Spontaneous
  Country: GB (occurrence: None)
  Receive Date: 20140314
  Receipt Date: 20140314
  Transmission Date: 20141002
  Serious: Yes (Life-Threatening, Hospitalization, Disabling)
  Sender: FDA-Public Use
  Company Number: KAD201403-000300

PATIENT
  Sex: Male

DRUGS (3)
  1. RIBAVIRIN (RIBAVIRIN) [Suspect]
     Route: 048
  2. VICTRELIS (BOCEPREVIR) [Suspect]
     Indication: HEPATITIS C
     Route: 048
     Dates: start: 201309, end: 201312
  3. VIRAFERONPEG (PEGINTERFERON ALFA-2B) (INJECTION) (PEGINTERFERON ALFA-2B) [Suspect]
     Dosage: INJECTION, 1.5 MCG/KG, SUBCUTANEOUS
     Route: 058

REACTIONS (1)
  - Hepatic cirrhosis [None]
